FAERS Safety Report 24605046 (Version 1)
Quarter: 2024Q4

REPORT INFORMATION
  Report Type: Spontaneous
  Country: US (occurrence: US)
  Receive Date: 20241111
  Receipt Date: 20241111
  Transmission Date: 20250115
  Serious: No
  Sender: ELI LILLY AND COMPANY
  Company Number: US-ELI_LILLY_AND_COMPANY-US202411004712

PATIENT
  Age: 53 Year
  Sex: Female

DRUGS (2)
  1. TALTZ [Suspect]
     Active Substance: IXEKIZUMAB
     Indication: Psoriasis
     Dosage: 80 MG, OTHER (EVERY TWO WEEKS)
     Route: 058
  2. TALTZ [Suspect]
     Active Substance: IXEKIZUMAB
     Dosage: 80 MG, OTHER (EVERY FOUR WEEKS)
     Route: 058

REACTIONS (8)
  - Arthralgia [Recovered/Resolved]
  - Pain [Recovered/Resolved]
  - Fatigue [Recovered/Resolved]
  - Respiratory tract infection [Unknown]
  - Drug ineffective [Unknown]
  - Nausea [Recovered/Resolved]
  - Injection site pain [Recovered/Resolved]
  - Injection site reaction [Recovered/Resolved]
